FAERS Safety Report 4562398-3 (Version None)
Quarter: 2005Q1

REPORT INFORMATION
  Report Type: 
  Country: None (occurrence: None)
  Receive Date: 20050127
  Receipt Date: 20040602
  Transmission Date: 20050727
  Serious: Yes (Other)
  Sender: FDA-Public Use
  Company Number: US-BRISTOL-MYERS SQUIBB COMPANY-12603510

PATIENT
  Age: 5 Decade
  Sex: Male

DRUGS (3)
  1. KENALOG [Suspect]
     Indication: ROTATOR CUFF SYNDROME
     Route: 014
     Dates: start: 20040526, end: 20040526
  2. LIDOCAINE HCL [Suspect]
     Indication: ROTATOR CUFF SYNDROME
     Dates: start: 20040526, end: 20040526
  3. MARCAINE [Suspect]
     Indication: ROTATOR CUFF SYNDROME
     Dates: start: 20040526, end: 20040526

REACTIONS (1)
  - ANAPHYLACTIC REACTION [None]
